FAERS Safety Report 9402944 (Version 1)
Quarter: 2013Q3

REPORT INFORMATION
  Report Type: Spontaneous
  Country: DK (occurrence: DK)
  Receive Date: 20130716
  Receipt Date: 20130716
  Transmission Date: 20140515
  Serious: Yes (Other)
  Sender: FDA-Public Use
  Company Number: DK-TEVA-417237ISR

PATIENT
  Age: 46 Year
  Sex: Female

DRUGS (2)
  1. OXALIPLATIN [Suspect]
     Indication: GASTROINTESTINAL CARCINOMA
     Dates: start: 20100329
  2. CAPECITABIN [Concomitant]
     Indication: GASTROINTESTINAL CARCINOMA
     Dates: start: 20100329

REACTIONS (13)
  - Deep vein thrombosis [Unknown]
  - Hypersensitivity [Unknown]
  - Intermittent claudication [Unknown]
  - Ischaemic neuropathy [Unknown]
  - Paraesthesia [Unknown]
  - Visual impairment [Unknown]
  - Dyspnoea [Unknown]
  - Rash [Unknown]
  - Pain in extremity [Unknown]
  - Hyperthermia [Unknown]
  - Local swelling [Unknown]
  - Gait disturbance [Unknown]
  - Neuralgia [Unknown]
